FAERS Safety Report 15984021 (Version 1)
Quarter: 2019Q1

REPORT INFORMATION
  Report Type: Spontaneous
  Country: US (occurrence: US)
  Receive Date: 20190220
  Receipt Date: 20190220
  Transmission Date: 20190418
  Serious: No
  Sender: FDA-Public Use
  Company Number: US-TEVA-2019-US-1004248

PATIENT
  Age: 35 Year
  Sex: Female

DRUGS (2)
  1. PROZAC [Concomitant]
     Active Substance: FLUOXETINE HYDROCHLORIDE
  2. PROVIGIL [Suspect]
     Active Substance: MODAFINIL
     Indication: HYPERSOMNIA
     Route: 065
     Dates: start: 20190105

REACTIONS (3)
  - Vomiting [Unknown]
  - Live birth [Unknown]
  - Maternal exposure during pregnancy [Unknown]

NARRATIVE: CASE EVENT DATE: 20180823
